FAERS Safety Report 24702390 (Version 2)
Quarter: 2024Q4

REPORT INFORMATION
  Report Type: Report from Study
  Country: JP (occurrence: JP)
  Receive Date: 20241205
  Receipt Date: 20241213
  Transmission Date: 20250115
  Serious: Yes (Death)
  Sender: AKEBIA THERAPEUTICS
  Company Number: JP-MTPC-MTPC2024-0024191

PATIENT
  Age: 71 Year
  Sex: Male
  Weight: 62.5 kg

DRUGS (6)
  1. VADADUSTAT [Suspect]
     Active Substance: VADADUSTAT
     Indication: Nephrogenic anaemia
     Dosage: 150 MILLIGRAM, QD
     Route: 048
     Dates: start: 20221117, end: 20230213
  2. EPOETIN BETA [Concomitant]
     Active Substance: ERYTHROPOIETIN
     Indication: Nephrogenic anaemia
     Dosage: 3000 INTERNATIONAL UNIT, 3/WEEK
     Route: 042
     Dates: end: 20221115
  3. IRON SUCROSE [Concomitant]
     Active Substance: IRON SUCROSE
     Indication: Product used for unknown indication
     Dosage: 40 MILLIGRAM, QD
     Route: 051
  4. ASPIRIN [Concomitant]
     Active Substance: ASPIRIN
     Indication: Prophylaxis
     Dosage: 100 MILLIGRAM, QD
     Route: 048
  5. NICORANDIL [Concomitant]
     Active Substance: NICORANDIL
     Indication: Prophylaxis
     Dosage: 5 MILLIGRAM, QD
     Route: 048
  6. Fesin [Concomitant]
     Dosage: 40 MILLIGRAM, QD
     Route: 051

REACTIONS (1)
  - Death [Fatal]
